FAERS Safety Report 19034656 (Version 1)
Quarter: 2021Q1

REPORT INFORMATION
  Report Type: Report from Study
  Country: US (occurrence: US)
  Receive Date: 20210319
  Receipt Date: 20210319
  Transmission Date: 20210420
  Serious: No
  Sender: FDA-Public Use
  Company Number: US-INCYTE CORPORATION-2021IN001188

PATIENT

DRUGS (1)
  1. JAKAFI [Suspect]
     Active Substance: RUXOLITINIB
     Indication: MYELOPROLIFERATIVE NEOPLASM
     Dosage: 10 MILLIGRAM
     Route: 048
     Dates: start: 20200204

REACTIONS (4)
  - White blood cell disorder [Unknown]
  - Off label use [Unknown]
  - Splenomegaly [Unknown]
  - Product availability issue [Unknown]

NARRATIVE: CASE EVENT DATE: 20200204
